FAERS Safety Report 9459720 (Version 1)
Quarter: 2013Q3

REPORT INFORMATION
  Report Type: Report from Study
  Country: AU (occurrence: AU)
  Receive Date: 20130815
  Receipt Date: 20130815
  Transmission Date: 20140515
  Serious: Yes (Other)
  Sender: FDA-Public Use
  Company Number: AU-BAYER-2013-097125

PATIENT
  Sex: Male

DRUGS (2)
  1. REGORAFENIB [Suspect]
     Indication: COLORECTAL ADENOCARCINOMA
     Dosage: 160 MG, 3 WEEKS
     Route: 048
     Dates: start: 20130722
  2. DEXAMETHASONE [Concomitant]
     Dosage: 4 MG, BID
     Route: 048
     Dates: start: 20130725

REACTIONS (2)
  - Rash pustular [Not Recovered/Not Resolved]
  - Subcutaneous abscess [Not Recovered/Not Resolved]
